FAERS Safety Report 9463567 (Version 2)
Quarter: 2013Q3

REPORT INFORMATION
  Report Type: Spontaneous
  Country: US (occurrence: US)
  Receive Date: 20130819
  Receipt Date: 20130913
  Transmission Date: 20140515
  Serious: Yes (Hospitalization)
  Sender: FDA-Public Use
  Company Number: US-BRISTOL-MYERS SQUIBB COMPANY-19193549

PATIENT
  Age: 69 Year
  Sex: Female
  Weight: 62.58 kg

DRUGS (13)
  1. COUMADIN [Suspect]
     Indication: ATRIAL FIBRILLATION
     Route: 048
     Dates: start: 20130705, end: 20130708
  2. SYNTHROID [Suspect]
     Indication: HYPOTHYROIDISM
     Dosage: INTER: 2013, RESTART: JUL-2013
     Route: 048
     Dates: start: 2013, end: 20130710
  3. CENTRUM SILVER [Concomitant]
  4. VITAMIN D [Concomitant]
  5. TYLENOL [Concomitant]
  6. TOPROL [Concomitant]
     Dates: start: 201112
  7. MYCELEX [Concomitant]
  8. DIFLUCAN [Concomitant]
     Dosage: TABLET
  9. ZOFRAN [Concomitant]
     Dosage: TABLET
  10. PROTONIX [Concomitant]
     Dosage: TABLET
  11. XANAX [Concomitant]
     Dosage: TABLET
  12. ARMOUR THYROID [Concomitant]
     Dosage: TABLET
  13. VITAMIN B COMPLEX [Concomitant]

REACTIONS (12)
  - Hypersensitivity [Unknown]
  - Dehydration [Recovering/Resolving]
  - Vomiting [Recovering/Resolving]
  - Diarrhoea [Unknown]
  - Arthralgia [Unknown]
  - Myalgia [Unknown]
  - Feeling abnormal [Unknown]
  - Decreased appetite [Recovering/Resolving]
  - Abdominal discomfort [Unknown]
  - Bradycardia [Unknown]
  - Ischaemia [Unknown]
  - Nausea [Recovering/Resolving]
